FAERS Safety Report 7017974-5 (Version None)
Quarter: 2010Q3

REPORT INFORMATION
  Report Type: 
  Country: None (occurrence: None)
  Receive Date: 20100927
  Receipt Date: 20100927
  Transmission Date: 20110219
  Serious: Yes (Death)
  Sender: FDA-Public Use
  Company Number: None

PATIENT
  Sex: Male
  Weight: 81.2 kg

DRUGS (2)
  1. CELECOXIB [Suspect]
     Indication: LUNG NEOPLASM MALIGNANT
     Dosage: 600 MG TWICE A DAY ORALLY
     Route: 048
     Dates: start: 20100701, end: 20100901
  2. PEMETREXED [Suspect]
     Indication: LUNG NEOPLASM MALIGNANT
     Dosage: 750 MG D1 + 2 EVERY 21 D IV
     Route: 042
     Dates: start: 20100805, end: 20100813

REACTIONS (9)
  - ARTHRITIS [None]
  - CONFUSIONAL STATE [None]
  - CONSTIPATION [None]
  - DRUG TOXICITY [None]
  - FALL [None]
  - FATIGUE [None]
  - HEADACHE [None]
  - MUSCULAR WEAKNESS [None]
  - MUSCULOSKELETAL PAIN [None]
